APPROVED DRUG PRODUCT: PROPAFENONE HYDROCHLORIDE
Active Ingredient: PROPAFENONE HYDROCHLORIDE
Strength: 325MG
Dosage Form/Route: CAPSULE, EXTENDED RELEASE;ORAL
Application: A210339 | Product #002 | TE Code: AB
Applicant: SINOTHERAPEUTICS INC
Approved: Jan 4, 2019 | RLD: No | RS: No | Type: RX